FAERS Safety Report 13243389 (Version 1)
Quarter: 2017Q1

REPORT INFORMATION
  Report Type: Spontaneous
  Country: US (occurrence: US)
  Receive Date: 20170216
  Receipt Date: 20170216
  Transmission Date: 20170428
  Serious: No
  Sender: FDA-Public Use
  Company Number: US-ALLERGAN-1679249US

PATIENT
  Age: 73 Year
  Sex: Female

DRUGS (6)
  1. ETODOLAC. [Concomitant]
     Active Substance: ETODOLAC
     Indication: ARTHRITIS
     Dosage: 200 MG, QD
     Route: 048
  2. AMITRIPTYLINE [Concomitant]
     Active Substance: AMITRIPTYLINE
     Indication: ARTHRITIS
     Dosage: UNK
     Route: 048
  3. LIDEX NGN [Concomitant]
     Indication: PRURITUS
     Dosage: UNK
     Route: 061
  4. CLOBETASOL [Concomitant]
     Active Substance: CLOBETASOL
     Indication: PRURITUS
     Dosage: UNK
     Route: 061
  5. KYBELLA [Suspect]
     Active Substance: DEOXYCHOLIC ACID
     Indication: FAT TISSUE INCREASED
     Dosage: UNK
     Route: 058
     Dates: start: 20160428, end: 20160428
  6. TRAMADOL. [Concomitant]
     Active Substance: TRAMADOL
     Indication: ARTHRITIS
     Dosage: 50 MG, QD
     Route: 048

REACTIONS (3)
  - Sensation of foreign body [Recovered/Resolved]
  - Swelling [Recovered/Resolved]
  - Hypoaesthesia [Recovered/Resolved]

NARRATIVE: CASE EVENT DATE: 20160428
